FAERS Safety Report 8659639 (Version 2)
Quarter: 2012Q4

REPORT INFORMATION
  Report Type: 
  Country: IT (occurrence: IT)
  Receive Date: 20120711
  Receipt Date: 20120910
  Transmission Date: 20130627
  Serious: Yes (Death)
  Sender: FDA-Public Use
  Company Number: IT-ELI_LILLY_AND_COMPANY-IT201206009477

PATIENT
  Age: 51 Year
  Sex: Female

DRUGS (5)
  1. ZYPREXA [Suspect]
     Indication: PSYCHIATRIC DECOMPENSATION
     Dosage: 10 mg, UNK
  2. ZYPREXA [Suspect]
     Dosage: 25 mg, qd
     Route: 048
     Dates: start: 20120124, end: 20120625
  3. ARIPIPRAZOLE [Concomitant]
     Indication: OBSESSIVE-COMPULSIVE PERSONALITY DISORDER
     Dosage: 10 mg, qd
     Route: 048
     Dates: start: 20120430, end: 20120625
  4. PARACETAMOL [Concomitant]
     Dosage: 500 mg, UNK
     Route: 048
  5. DELORAZEPAM [Concomitant]

REACTIONS (5)
  - Sudden death [Fatal]
  - Pyrexia [Unknown]
  - Prescribed overdose [Unknown]
  - Weight decreased [Not Recovered/Not Resolved]
  - Hyperhidrosis [Unknown]
